APPROVED DRUG PRODUCT: NICOLAR
Active Ingredient: NIACIN
Strength: 500MG
Dosage Form/Route: TABLET;ORAL
Application: A083823 | Product #001
Applicant: SANOFI AVENTIS US LLC
Approved: Approved Prior to Jan 1, 1982 | RLD: Yes | RS: No | Type: DISCN